FAERS Safety Report 24970912 (Version 2)
Quarter: 2025Q3

REPORT INFORMATION
  Report Type: Spontaneous
  Country: IN (occurrence: IN)
  Receive Date: 20250214
  Receipt Date: 20250809
  Transmission Date: 20251021
  Serious: Yes (Other)
  Sender: ALEXION PHARMACEUTICALS
  Company Number: IN-AstraZeneca-CH-00804738A

PATIENT
  Age: 58 Year

DRUGS (1)
  1. BUDESONIDE [Suspect]
     Active Substance: BUDESONIDE
     Route: 065

REACTIONS (5)
  - Jaundice cholestatic [Unknown]
  - Biliary sepsis [Unknown]
  - Cholangiocarcinoma [Unknown]
  - Pleural effusion [Unknown]
  - Hyponatraemia [Unknown]
